FAERS Safety Report 8962325 (Version 1)
Quarter: 2012Q4

REPORT INFORMATION
  Report Type: Spontaneous
  Country: US (occurrence: None)
  Receive Date: 20121211
  Receipt Date: 20121211
  Transmission Date: 20130627
  Serious: No
  Sender: FDA-Public Use
  Company Number: None

PATIENT
  Age: 62 Year
  Sex: Female
  Weight: 113.4 kg

DRUGS (2)
  1. PRADAXA [Suspect]
     Indication: THROMBOSIS PROPHYLAXIS
     Dates: start: 201204
  2. PRADAXA [Suspect]
     Indication: PULMONARY EMBOLISM
     Dates: start: 201204

REACTIONS (3)
  - Joint swelling [None]
  - Pain in extremity [None]
  - Weight increased [None]
